FAERS Safety Report 21362505 (Version 2)
Quarter: 2022Q3

REPORT INFORMATION
  Report Type: Spontaneous
  Country: DE (occurrence: DE)
  Receive Date: 20220922
  Receipt Date: 20220923
  Transmission Date: 20221027
  Serious: Yes (Hospitalization, Other)
  Sender: FDA-Public Use
  Company Number: DE-BFARM-22007255

PATIENT
  Age: 74 Year
  Sex: Female
  Weight: 72 kg

DRUGS (5)
  1. DASATINIB [Suspect]
     Active Substance: DASATINIB
     Indication: Product used for unknown indication
     Route: 048
  2. DASATINIB [Suspect]
     Active Substance: DASATINIB
     Dosage: 20MG, 2-0-0-0
     Route: 048
  3. RAMIPRIL [Concomitant]
     Active Substance: RAMIPRIL
     Indication: Product used for unknown indication
     Dosage: 2.5 MG, 1-0-1-0
     Route: 048
  4. SULFAMETHOXAZOLE\TRIMETHOPRIM [Concomitant]
     Active Substance: SULFAMETHOXAZOLE\TRIMETHOPRIM
     Indication: Product used for unknown indication
     Dosage: 800|160 MG, 1-0-1-0
     Route: 048
  5. ACYCLOVIR [Concomitant]
     Active Substance: ACYCLOVIR
     Indication: Product used for unknown indication
     Dosage: MONDAY AND THURSDAY ONE TABLET EACH IN THE MORNING AND IN THE EVENING
     Route: 048

REACTIONS (5)
  - Haematochezia [Unknown]
  - Lower gastrointestinal haemorrhage [Unknown]
  - Anaemia [Unknown]
  - Syncope [Unknown]
  - Pallor [Unknown]
